FAERS Safety Report 9288141 (Version 1)
Quarter: 2013Q2

REPORT INFORMATION
  Report Type: Spontaneous
  Country: BR (occurrence: BR)
  Receive Date: 20130514
  Receipt Date: 20130514
  Transmission Date: 20140414
  Serious: Yes (Other)
  Sender: FDA-Public Use
  Company Number: BR-JNJFOC-20130503191

PATIENT
  Age: 44 Year
  Sex: Female
  Weight: 78 kg

DRUGS (3)
  1. TYLEX [Suspect]
     Indication: BACK PAIN
     Route: 048
     Dates: start: 20130504
  2. ATENOLOL [Concomitant]
     Indication: HYPERTENSION
     Route: 065
  3. HYDROCHLOROTHIAZIDE [Concomitant]
     Route: 065

REACTIONS (5)
  - Hepatitis [Recovering/Resolving]
  - Abdominal pain [Recovering/Resolving]
  - Feeling of relaxation [Recovering/Resolving]
  - Hypoaesthesia [Recovering/Resolving]
  - Nausea [Recovering/Resolving]
